FAERS Safety Report 7906710-3 (Version None)
Quarter: 2011Q4

REPORT INFORMATION
  Report Type: 
  Country: None (occurrence: None)
  Receive Date: 20111110
  Receipt Date: 20111104
  Transmission Date: 20120403
  Serious: Yes (Other)
  Sender: FDA-Public Use
  Company Number: IT-JNJFOC-20111101755

PATIENT
  Sex: Male

DRUGS (9)
  1. PREDNISONE [Concomitant]
     Route: 065
  2. KANRENOL [Concomitant]
     Route: 065
  3. LORAZEPAM [Concomitant]
     Route: 065
  4. THEO-DUR [Concomitant]
     Route: 065
  5. LASIX [Concomitant]
     Route: 065
  6. AVODART [Concomitant]
     Route: 065
  7. ALPRAZOLAM [Concomitant]
     Route: 065
  8. UNKNOWN MEDICATION [Concomitant]
     Route: 065
  9. LEVOFLOXACIN [Suspect]
     Indication: URINARY TRACT INFECTION
     Route: 048
     Dates: start: 20110926, end: 20111003

REACTIONS (4)
  - MUSCULOSKELETAL STIFFNESS [None]
  - CONVULSION [None]
  - MALAISE [None]
  - MUSCLE CONTRACTIONS INVOLUNTARY [None]
